FAERS Safety Report 10528415 (Version 2)
Quarter: 2014Q4

REPORT INFORMATION
  Report Type: Spontaneous
  Country: US (occurrence: US)
  Receive Date: 20141020
  Receipt Date: 20141119
  Transmission Date: 20150528
  Serious: Yes (Hospitalization, Other)
  Sender: FDA-Public Use
  Company Number: US-GILEAD-2014-0118930

PATIENT
  Age: 73 Year
  Sex: Female

DRUGS (4)
  1. ORENITRAM [Concomitant]
     Active Substance: TREPROSTINIL
  2. LETAIRIS [Suspect]
     Active Substance: AMBRISENTAN
     Indication: PULMONARY ARTERIAL HYPERTENSION
     Dosage: 10 MG, QD
     Route: 065
     Dates: start: 20120216
  3. REVATIO [Concomitant]
     Active Substance: SILDENAFIL CITRATE
  4. TYVASO [Concomitant]
     Active Substance: TREPROSTINIL

REACTIONS (4)
  - Oedema peripheral [Unknown]
  - Cardiac failure congestive [Unknown]
  - Treatment noncompliance [Unknown]
  - Fluid retention [Unknown]
